FAERS Safety Report 4753024-9 (Version None)
Quarter: 2005Q3

REPORT INFORMATION
  Report Type: 
  Country: None (occurrence: None)
  Receive Date: 20050826
  Receipt Date: 20050505
  Transmission Date: 20060218
  Serious: Yes (Hospitalization)
  Sender: FDA-Public Use
  Company Number: US-MERCK-0505USA00764

PATIENT
  Sex: Female
  Weight: 77 kg

DRUGS (10)
  1. VIOXX [Suspect]
     Indication: ARTHRITIS
     Route: 048
     Dates: start: 20010614, end: 20040915
  2. PROPRANOLOL HYDROCHLORIDE [Concomitant]
     Route: 065
     Dates: start: 19830101
  3. ASPIRIN [Concomitant]
     Route: 048
     Dates: start: 19860101, end: 20050101
  4. PREMARIN [Concomitant]
     Route: 065
     Dates: start: 19650101, end: 20040201
  5. LOTREL [Concomitant]
     Route: 065
     Dates: start: 19990101
  6. ALLOPURINOL [Concomitant]
     Route: 065
  7. AMOXICILLIN [Concomitant]
     Route: 065
  8. CHLORHEXIDINE ACETATE [Concomitant]
     Route: 065
  9. HYDROCHLOROTHIAZIDE AND TRIAMTERENE [Concomitant]
     Route: 065
  10. ACETAMINOPHEN AND HYDROCODONE BITARTRATE [Concomitant]
     Route: 065

REACTIONS (4)
  - BLOOD CHOLESTEROL INCREASED [None]
  - HYPERTENSION [None]
  - PULMONARY EMBOLISM [None]
  - RENAL FAILURE [None]
